FAERS Safety Report 6724991-9 (Version None)
Quarter: 2010Q2

REPORT INFORMATION
  Report Type: 
  Country: None (occurrence: None)
  Receive Date: 20100514
  Receipt Date: 20100505
  Transmission Date: 20101027
  Serious: No
  Sender: FDA-Public Use
  Company Number: US-BIOGENIDEC-2010BI015521

PATIENT
  Age: 38 Year
  Sex: Female

DRUGS (5)
  1. TYSABRI [Suspect]
     Indication: MULTIPLE SCLEROSIS
     Route: 042
     Dates: start: 20050103, end: 20050201
  2. TYSABRI [Suspect]
     Route: 042
     Dates: start: 20080211, end: 20100101
  3. TYSABRI [Suspect]
     Route: 042
     Dates: start: 20100101
  4. AVONEX [Concomitant]
     Indication: MULTIPLE SCLEROSIS
     Route: 030
     Dates: start: 20010821
  5. AVONEX [Concomitant]
     Route: 030

REACTIONS (6)
  - BLADDER DISORDER [None]
  - FATIGUE [None]
  - HYPOAESTHESIA [None]
  - MULTIPLE SCLEROSIS [None]
  - SINUSITIS [None]
  - TREMOR [None]
